FAERS Safety Report 5933471-X (Version None)
Quarter: 2008Q4

REPORT INFORMATION
  Report Type: 
  Country: None (occurrence: None)
  Receive Date: 20081024
  Receipt Date: 20081020
  Transmission Date: 20090506
  Serious: Yes (Hospitalization)
  Sender: FDA-Public Use
  Company Number: 035528

PATIENT
  Age: 70 Year
  Sex: Male
  Weight: 95.2 kg

DRUGS (14)
  1. DANAZOL [Suspect]
     Indication: PAROXYSMAL NOCTURNAL HAEMOGLOBINURIA
     Dosage: ORAL
     Route: 048
     Dates: start: 20080601, end: 20080801
  2. SOLIRIS [Suspect]
     Indication: PAROXYSMAL NOCTURNAL HAEMOGLOBINURIA
     Dosage: 600 MG, WEEKLY, INTRAVENOUS; 900 MG, INTRAVENOUS
     Route: 042
     Dates: start: 20080320, end: 20080411
  3. SOLIRIS [Suspect]
     Indication: PAROXYSMAL NOCTURNAL HAEMOGLOBINURIA
     Dosage: 600 MG, WEEKLY, INTRAVENOUS; 900 MG, INTRAVENOUS
     Route: 042
     Dates: start: 20080416, end: 20080613
  4. SOLIRIS [Suspect]
     Indication: PAROXYSMAL NOCTURNAL HAEMOGLOBINURIA
     Dosage: 600 MG, WEEKLY, INTRAVENOUS; 900 MG, INTRAVENOUS
     Route: 042
     Dates: start: 20080917, end: 20080917
  5. EXJADE [Suspect]
     Indication: PAROXYSMAL NOCTURNAL HAEMOGLOBINURIA
     Dosage: 500 MG, QID, ORAL; 500 MG, TID, ORAL
     Route: 048
     Dates: end: 20080906
  6. EXJADE [Suspect]
     Indication: PAROXYSMAL NOCTURNAL HAEMOGLOBINURIA
     Dosage: 500 MG, QID, ORAL; 500 MG, TID, ORAL
     Route: 048
     Dates: start: 20080908
  7. ALLOPURINOL [Concomitant]
  8. LOPRESSOR [Concomitant]
  9. LASIX [Concomitant]
  10. ZOCOR [Concomitant]
  11. ASPIRIN [Concomitant]
  12. FOLIC ACID [Concomitant]
  13. VITAMIN B6 [Concomitant]
  14. MULTIVITAMIN [Concomitant]

REACTIONS (8)
  - ABDOMINAL DISCOMFORT [None]
  - ABDOMINAL PAIN LOWER [None]
  - BLOOD CREATININE INCREASED [None]
  - CARDIAC FAILURE CONGESTIVE [None]
  - HAEMOGLOBIN DECREASED [None]
  - NAUSEA [None]
  - OEDEMA PERIPHERAL [None]
  - RASH [None]
